FAERS Safety Report 13082577 (Version 4)
Quarter: 2017Q2

REPORT INFORMATION
  Report Type: Spontaneous
  Country: US (occurrence: US)
  Receive Date: 20170103
  Receipt Date: 20170518
  Transmission Date: 20170830
  Serious: Yes (Hospitalization, Other)
  Sender: FDA-Public Use
  Company Number: US-ASTRAZENECA-2017SE00218

PATIENT
  Age: 746 Month
  Sex: Male

DRUGS (9)
  1. REMERON [Concomitant]
     Active Substance: MIRTAZAPINE
     Route: 065
  2. FISH OIL [Concomitant]
     Active Substance: FISH OIL
  3. SINEQUAN [Concomitant]
     Active Substance: DOXEPIN HYDROCHLORIDE
     Route: 065
  4. SENNA PLUS [Concomitant]
     Active Substance: DOCUSATE SODIUM\SENNOSIDES\SENNOSIDES A AND B
  5. METAMUCIL [Concomitant]
     Active Substance: PLANTAGO SEED
     Dosage: 3 TO 4 TIMES A DAY
  6. MOVANTIK [Concomitant]
     Active Substance: NALOXEGOL OXALATE
     Indication: CONSTIPATION
     Dosage: 25.0MG AS REQUIRED
     Dates: start: 2016
  7. QUETIAPINE FUMARATE. [Suspect]
     Active Substance: QUETIAPINE FUMARATE
     Indication: SLEEP DISORDER
     Route: 048
  8. GABAPENTIN. [Concomitant]
     Active Substance: GABAPENTIN
     Route: 065
  9. QUETIAPINE FUMARATE. [Suspect]
     Active Substance: QUETIAPINE FUMARATE
     Indication: SLEEP DISORDER
     Route: 048
     Dates: start: 2015

REACTIONS (15)
  - Myocardial infarction [Unknown]
  - Weight fluctuation [Unknown]
  - Constipation [Unknown]
  - Dysstasia [Unknown]
  - Off label use [Unknown]
  - Nausea [Unknown]
  - Insomnia [Unknown]
  - Nerve injury [Unknown]
  - Back pain [Unknown]
  - Angina pectoris [Unknown]
  - Neuropathy peripheral [Unknown]
  - Product use in unapproved indication [Unknown]
  - Mental disorder [Unknown]
  - Mental impairment [Unknown]
  - Urine output increased [Unknown]

NARRATIVE: CASE EVENT DATE: 201612
